FAERS Safety Report 7138869-2 (Version None)
Quarter: 2010Q4

REPORT INFORMATION
  Report Type: 
  Country: None (occurrence: None)
  Receive Date: 20101206
  Receipt Date: 20101126
  Transmission Date: 20110411
  Serious: Yes (Other)
  Sender: FDA-Public Use
  Company Number: AU-ASTRAZENECA-2010SE56175

PATIENT
  Sex: Female

DRUGS (1)
  1. ZOLADEX [Suspect]
     Indication: PRECOCIOUS PUBERTY
     Route: 058

REACTIONS (2)
  - AUTOIMMUNE HEPATITIS [None]
  - INTENTIONAL DRUG MISUSE [None]
